FAERS Safety Report 24563269 (Version 2)
Quarter: 2024Q4

REPORT INFORMATION
  Report Type: Spontaneous
  Country: US (occurrence: US)
  Receive Date: 20241030
  Receipt Date: 20241030
  Transmission Date: 20250114
  Serious: Yes (Hospitalization, Other)
  Sender: ROCHE
  Company Number: US-ROCHE-10000118323

PATIENT
  Age: 46 Year
  Sex: Male
  Weight: 113.39 kg

DRUGS (4)
  1. XOLAIR [Suspect]
     Active Substance: OMALIZUMAB
     Indication: Urticaria
     Route: 065
     Dates: start: 202401
  2. PREDNISONE [Concomitant]
     Active Substance: PREDNISONE
     Indication: Urticaria
     Route: 048
     Dates: start: 2024
  3. PREDNISONE [Concomitant]
     Active Substance: PREDNISONE
     Route: 048
  4. GABAPENTIN [Concomitant]
     Active Substance: GABAPENTIN
     Indication: Neuralgia
     Route: 048
     Dates: start: 202406

REACTIONS (3)
  - Infection [Recovered/Resolved]
  - Nerve injury [Unknown]
  - Renal cancer [Unknown]

NARRATIVE: CASE EVENT DATE: 20240601
